FAERS Safety Report 9788391 (Version 2)
Quarter: 2014Q1

REPORT INFORMATION
  Report Type: Report from Study
  Country: US (occurrence: US)
  Receive Date: 20131230
  Receipt Date: 20140122
  Transmission Date: 20141002
  Serious: Yes (Other)
  Sender: FDA-Public Use
  Company Number: PHEH2013US026268

PATIENT
  Age: 44 Year
  Sex: Female

DRUGS (3)
  1. GILENYA [Suspect]
     Indication: RELAPSING-REMITTING MULTIPLE SCLEROSIS
     Route: 048
     Dates: start: 20130601
  2. CYMBALTA [Concomitant]
     Indication: DEPRESSION
  3. OXYCONTIN [Concomitant]
     Indication: PAIN IN EXTREMITY

REACTIONS (3)
  - Loss of consciousness [Unknown]
  - Diplopia [Recovered/Resolved]
  - Gait disturbance [Recovered/Resolved]
